FAERS Safety Report 6774378-8 (Version None)
Quarter: 2010Q2

REPORT INFORMATION
  Report Type: 
  Country: None (occurrence: None)
  Receive Date: 20100617
  Receipt Date: 20100609
  Transmission Date: 20101027
  Serious: Yes (Other)
  Sender: FDA-Public Use
  Company Number: PT-JNJFOC-20100604571

PATIENT
  Age: 26 Year
  Sex: Male

DRUGS (6)
  1. RISPERIDONE [Suspect]
     Indication: SELF INJURIOUS BEHAVIOUR
     Route: 030
  2. RISPERIDONE [Suspect]
     Route: 030
  3. RISPERIDONE [Suspect]
     Route: 030
  4. RISPERIDONE [Suspect]
     Indication: AGGRESSION
     Route: 030
  5. RISPERIDONE [Suspect]
     Route: 030
  6. RISPERIDONE [Suspect]
     Route: 030

REACTIONS (2)
  - OFF LABEL USE [None]
  - PLEUROTHOTONUS [None]
